FAERS Safety Report 8077021-3 (Version None)
Quarter: 2012Q1

REPORT INFORMATION
  Report Type: 
  Country: None (occurrence: None)
  Receive Date: 20120127
  Receipt Date: 20120119
  Transmission Date: 20120608
  Serious: Yes (Other)
  Sender: FDA-Public Use
  Company Number: PHHY2011FR92485

PATIENT
  Sex: Female
  Weight: 110 kg

DRUGS (2)
  1. INSULIN [Concomitant]
  2. RASILEZ [Suspect]
     Dosage: 1 DF, QD
     Route: 048

REACTIONS (1)
  - RENAL TUBULAR ACIDOSIS [None]
